FAERS Safety Report 5161998-X (Version None)
Quarter: 2006Q4

REPORT INFORMATION
  Report Type: 
  Country: None (occurrence: None)
  Receive Date: 20061121
  Receipt Date: 20061109
  Transmission Date: 20070319
  Serious: Yes (Other)
  Sender: FDA-Public Use
  Company Number: B0446767A

PATIENT
  Age: 33 Year
  Sex: Male

DRUGS (2)
  1. LITHIUM CARBONATE [Suspect]
     Indication: BIPOLAR DISORDER
  2. CITALOPRAM HYDROBROMIDE [Concomitant]

REACTIONS (7)
  - ACTIVITIES OF DAILY LIVING IMPAIRED [None]
  - ANTIACETYLCHOLINE RECEPTOR ANTIBODY POSITIVE [None]
  - DRUG INTERACTION [None]
  - FALL [None]
  - IMPAIRED WORK ABILITY [None]
  - LYMPHOID TISSUE HYPERPLASIA [None]
  - MYASTHENIA GRAVIS [None]
